FAERS Safety Report 11270111 (Version 2)
Quarter: 2015Q3

REPORT INFORMATION
  Report Type: Spontaneous
  Country: JP (occurrence: JP)
  Receive Date: 20150714
  Receipt Date: 20150827
  Transmission Date: 20151125
  Serious: Yes (Life-Threatening, Hospitalization, Other)
  Sender: FDA-Public Use
  Company Number: JP-SHIRE-JP201507512

PATIENT
  Age: 33 Year
  Sex: Male

DRUGS (13)
  1. REGPARA [Concomitant]
     Active Substance: CINACALCET HYDROCHLORIDE
     Indication: BLOOD PARATHYROID HORMONE INCREASED
     Dosage: 25 MG, UNKNOWN
     Route: 048
     Dates: start: 20101213
  2. ADALAT CRONO [Concomitant]
     Active Substance: NIFEDIPINE
     Indication: HYPERTENSION
     Dosage: 40 MG, UNKNOWN
     Route: 048
     Dates: start: 20120111
  3. FOSRENOL [Suspect]
     Active Substance: LANTHANUM CARBONATE
     Indication: HYPERPHOSPHATAEMIA
     Dosage: 750 MG, UNKNOWN
     Route: 048
     Dates: start: 20101018, end: 20150607
  4. FEBURIC [Concomitant]
     Active Substance: FEBUXOSTAT
     Indication: HYPERURICAEMIA
     Dosage: 10 MG, UNKNOWN
     Route: 048
     Dates: start: 20131104
  5. GASTER [Concomitant]
     Active Substance: FAMOTIDINE
     Indication: GASTRITIS
     Dosage: 10 MG, UNKNOWN
     Route: 048
     Dates: start: 20120324
  6. NESP [Concomitant]
     Active Substance: DARBEPOETIN ALFA
     Indication: BONE MARROW FAILURE
     Dosage: 60 ?G, UNKNOWN
     Route: 042
     Dates: start: 20100106
  7. BAYASPIRIN [Concomitant]
     Active Substance: ASPIRIN
     Indication: THROMBOSIS PROPHYLAXIS
     Dosage: 200 MG, UNKNOWN
     Route: 048
     Dates: start: 20130320
  8. ANPLAG [Concomitant]
     Active Substance: SARPOGRELATE
     Indication: ANTICOAGULANT THERAPY
     Dosage: 300 MG, UNKNOWN
     Route: 048
     Dates: start: 20101222
  9. OXAROL [Concomitant]
     Active Substance: MAXACALCITOL
     Indication: HYPOCALCAEMIA
     Dosage: 5 ?G, UNKNOWN
     Route: 042
     Dates: start: 20101008
  10. CATAPRES                           /00171102/ [Concomitant]
     Indication: HYPERTENSION
     Dosage: 150 ?G, UNKNOWN
     Route: 048
     Dates: start: 20120217
  11. IRBETAN [Concomitant]
     Active Substance: IRBESARTAN
     Indication: HYPERTENSION
     Dosage: 200 MG, UNKNOWN
     Route: 048
     Dates: start: 20120111
  12. SELBEX [Concomitant]
     Active Substance: TEPRENONE
     Indication: GASTRITIS
     Dosage: 150 MG, UNKNOWN
     Route: 048
     Dates: start: 20101111
  13. LIPOVAS                            /00848101/ [Concomitant]
     Active Substance: SIMVASTATIN
     Indication: DYSLIPIDAEMIA
     Dosage: 10 MG, UNKNOWN
     Route: 048
     Dates: start: 20120111

REACTIONS (2)
  - Large intestine perforation [Recovered/Resolved]
  - Peritonitis [Unknown]

NARRATIVE: CASE EVENT DATE: 20150608
